FAERS Safety Report 11250552 (Version 3)
Quarter: 2015Q3

REPORT INFORMATION
  Report Type: Spontaneous
  Country: FR (occurrence: FR)
  Receive Date: 20150708
  Receipt Date: 20150720
  Transmission Date: 20151125
  Serious: Yes (Hospitalization)
  Sender: FDA-Public Use
  Company Number: FR-PFIZER INC-2015221310

PATIENT
  Age: 29 Year
  Sex: Female

DRUGS (8)
  1. DIPHANTOINE [Suspect]
     Active Substance: PHENYTOIN
     Dosage: 100 MG AM - 125 MG PM
     Dates: start: 201209
  2. CARBAMAZEPINE. [Concomitant]
     Active Substance: CARBAMAZEPINE
     Indication: PARTIAL SEIZURES
     Dosage: 600 MG, 2X/DAY
     Dates: start: 201203
  3. DIPHANTOINE [Suspect]
     Active Substance: PHENYTOIN
     Dosage: 100 MG AM AND 125 MG PM
     Dates: start: 2012
  4. DIPHANTOINE [Suspect]
     Active Substance: PHENYTOIN
     Indication: PARTIAL SEIZURES
     Dosage: 100 MG, 2X/DAY
     Dates: start: 20120612
  5. PHENOBARBITAL BASE ? CAFFEINE ANHYDRIDE [Concomitant]
     Active Substance: CAFFEINE\PHENOBARBITAL
     Indication: PARTIAL SEIZURES
     Dosage: 50 MG, DAILY
     Dates: start: 201203
  6. DIPHANTOINE [Suspect]
     Active Substance: PHENYTOIN
     Dosage: 100 MG, 2X/DAY
     Dates: start: 201209
  7. DIPHANTOINE [Suspect]
     Active Substance: PHENYTOIN
     Dosage: 125 MG, 2X/DAY
     Dates: start: 2012
  8. DIPHANTOINE [Suspect]
     Active Substance: PHENYTOIN
     Dosage: 100 MG AM - 150 MG PM ONE DAY ALTERNATING WITH 100 MG AM - 100 MG PM THE NEXT DAY
     Dates: start: 201211

REACTIONS (8)
  - Affective disorder [Recovering/Resolving]
  - Condition aggravated [Recovering/Resolving]
  - Memory impairment [Recovering/Resolving]
  - Gait disturbance [Recovering/Resolving]
  - Seizure [Recovering/Resolving]
  - Anticonvulsant drug level increased [Unknown]
  - Asthenia [Recovering/Resolving]
  - Partial seizures with secondary generalisation [Recovering/Resolving]

NARRATIVE: CASE EVENT DATE: 20120618
